FAERS Safety Report 5930487-4 (Version None)
Quarter: 2008Q4

REPORT INFORMATION
  Report Type: 
  Country: None (occurrence: None)
  Receive Date: 20081026
  Receipt Date: 20081013
  Transmission Date: 20090506
  Serious: Yes (Hospitalization)
  Sender: FDA-Public Use
  Company Number: PHHY2008FR24934

PATIENT

DRUGS (10)
  1. TRILEPTAL [Suspect]
     Indication: NEURALGIA
     Dosage: 150 MG, QD
     Route: 048
     Dates: start: 20080124, end: 20080125
  2. TRILEPTAL [Suspect]
     Dosage: 150 MG, BID
     Route: 048
     Dates: start: 20080126, end: 20080130
  3. TRILEPTAL [Suspect]
     Dosage: 450 MG/DAY
     Route: 048
     Dates: start: 20080131, end: 20080204
  4. TRILEPTAL [Suspect]
     Dosage: 300 MG, BID
     Route: 048
     Dates: start: 20080205, end: 20080215
  5. SKENAN [Suspect]
     Indication: PAIN
     Dosage: 10 MG/DAY
     Dates: start: 20080124
  6. PRIMPERAN [Suspect]
     Indication: VOMITING
     Dosage: UNK
     Dates: start: 20080215
  7. MORPHINE [Suspect]
     Indication: PAIN
     Dosage: UNK
     Dates: start: 20080206, end: 20080213
  8. OGASTRO [Suspect]
     Indication: ULCER
     Dosage: UNK
     Dates: start: 20080205
  9. URSOLVAN-200 [Suspect]
  10. MORPHINE [Concomitant]
     Indication: PAIN
     Dosage: UNK
     Dates: start: 20080206, end: 20080226

REACTIONS (10)
  - ERYTHEMA [None]
  - FAECALOMA [None]
  - HEPATITIS CHOLESTATIC [None]
  - HYPONATRAEMIA [None]
  - INFECTION [None]
  - MURPHY'S SIGN POSITIVE [None]
  - PRURITUS [None]
  - SUBILEUS [None]
  - ULCER [None]
  - VOMITING [None]
